FAERS Safety Report 5071698-2 (Version None)
Quarter: 2006Q3

REPORT INFORMATION
  Report Type: 
  Country: None (occurrence: None)
  Receive Date: 20060801
  Receipt Date: 20060727
  Transmission Date: 20061208
  Serious: Yes (Hospitalization)
  Sender: FDA-Public Use
  Company Number: AZAUS200600093

PATIENT
  Age: 58 Year
  Sex: Male
  Weight: 78.0187 kg

DRUGS (6)
  1. VIDAZA [Suspect]
     Indication: MYELODYSPLASTIC SYNDROME
     Dosage: 75 MG/M2 (140 MG) SUBCUTANEOUS
     Route: 058
     Dates: start: 20060206, end: 20060214
  2. VIDAZA [Suspect]
  3. VIDAZA [Suspect]
  4. ACETAMINOPHEN/CODEINE #3 (GALENIC /PARACETAMOL/CODEINE) [Concomitant]
  5. PROCHLORPERAZINE MALEATE [Concomitant]
  6. IPRATROPIUM/ALBUTEROL (SALBUTAMOL W/IMPRATROPIUM) [Concomitant]

REACTIONS (4)
  - COLITIS [None]
  - ILEUS [None]
  - INTESTINAL OBSTRUCTION [None]
  - PANCREATITIS [None]
